FAERS Safety Report 9541614 (Version 2)
Quarter: 2013Q3

REPORT INFORMATION
  Report Type: Spontaneous
  Country: US (occurrence: US)
  Receive Date: 20130923
  Receipt Date: 20130923
  Transmission Date: 20140515
  Serious: Yes (Hospitalization, Other)
  Sender: FDA-Public Use
  Company Number: US-JNJFOC-20130210133

PATIENT
  Age: 68 Year
  Sex: Male
  Weight: 79.38 kg

DRUGS (8)
  1. LEVAQUIN [Suspect]
     Indication: PNEUMONIA
     Route: 048
     Dates: start: 20110507
  2. LEVAQUIN [Suspect]
     Indication: COUGH
     Route: 048
     Dates: start: 20110507
  3. PRAVASTATIN [Concomitant]
     Indication: HYPERTENSION
     Dosage: IN MORNING
     Route: 065
  4. BENAZEPRIL [Concomitant]
     Indication: PRODUCT USED FOR UNKNOWN INDICATION
     Route: 065
  5. OMEPRAZOLE [Concomitant]
     Indication: PRODUCT USED FOR UNKNOWN INDICATION
     Route: 065
  6. AMLODIPINE [Concomitant]
     Indication: PRODUCT USED FOR UNKNOWN INDICATION
     Route: 065
  7. ADVAIR [Concomitant]
     Indication: PRODUCT USED FOR UNKNOWN INDICATION
     Dosage: 250/50 AS NEEDED
     Route: 065
  8. ASPIRIN [Concomitant]
     Route: 065

REACTIONS (6)
  - Tendon rupture [Recovering/Resolving]
  - Tendon disorder [Recovered/Resolved]
  - Plantar fasciitis [Unknown]
  - Muscle atrophy [Unknown]
  - Musculoskeletal pain [Unknown]
  - Axillary pain [Unknown]
